FAERS Safety Report 8661112 (Version 2)
Quarter: 2012Q4

REPORT INFORMATION
  Report Type: Report from Study
  Country: JP (occurrence: NA)
  Receive Date: 20120711
  Receipt Date: 20120907
  Transmission Date: 20130627
  Serious: Yes (Other)
  Sender: FDA-Public Use
  Company Number: JP-ROCHE-1085636

PATIENT
  Age: 62 Year
  Sex: Male

DRUGS (4)
  1. RANIBIZUMAB [Suspect]
     Indication: AGE-RELATED MACULAR DEGENERATION
     Route: 050
     Dates: start: 20110114
  2. RANIBIZUMAB [Suspect]
     Route: 050
     Dates: start: 20110221
  3. RANIBIZUMAB [Suspect]
     Route: 050
     Dates: start: 20110328
  4. RANIBIZUMAB [Suspect]
     Route: 050
     Dates: start: 20110525

REACTIONS (2)
  - Retinal tear [Recovering/Resolving]
  - Retinal detachment [Unknown]
